FAERS Safety Report 8293850-5 (Version None)
Quarter: 2012Q2

REPORT INFORMATION
  Report Type: 
  Country: None (occurrence: None)
  Receive Date: 20120418
  Receipt Date: 20120413
  Transmission Date: 20120825
  Serious: No
  Sender: FDA-Public Use
  Company Number: US-PFIZER INC-2012093537

PATIENT
  Sex: Male

DRUGS (8)
  1. FOLIC ACID [Concomitant]
     Dosage: UNK
  2. ASPIRIN [Concomitant]
     Dosage: UNK
  3. CALCIUM [Concomitant]
     Dosage: UNK
  4. MULTIPLE VITAMINS [Concomitant]
     Dosage: UNK
  5. PERIDOS [Concomitant]
     Dosage: UNK
  6. ATENOLOL [Concomitant]
     Dosage: UNK
  7. LIPITOR [Suspect]
     Dosage: 10, 1 DAILY
  8. DOXEPIN [Concomitant]
     Dosage: UNK

REACTIONS (1)
  - BLOOD CHOLESTEROL ABNORMAL [None]
